FAERS Safety Report 8226703-9 (Version None)
Quarter: 2012Q1

REPORT INFORMATION
  Report Type: 
  Country: None (occurrence: None)
  Receive Date: 20120322
  Receipt Date: 20120317
  Transmission Date: 20120608
  Serious: Yes (Hospitalization, Other)
  Sender: FDA-Public Use
  Company Number: US-BAYER-2011-091647

PATIENT
  Age: 33 Year
  Sex: Female
  Weight: 77 kg

DRUGS (8)
  1. YAZ [Suspect]
     Indication: CONTRACEPTION
     Dosage: UNK
     Route: 048
     Dates: start: 20090201, end: 20090701
  2. NOVAREL [Concomitant]
     Dosage: UNK
     Dates: start: 20090218
  3. CLOMIPHENE CITRATE [Concomitant]
     Dosage: UNK
     Dates: start: 20090209
  4. PROGESTERONE IN OIL [Concomitant]
     Dosage: UNK
     Dates: start: 20090220
  5. PROMETRIUM [Concomitant]
     Dosage: UNK
     Dates: start: 20090220
  6. YASMIN [Suspect]
     Indication: CONTRACEPTION
     Dosage: UNK
     Route: 048
     Dates: start: 20090201, end: 20090701
  7. MENOPUR [Concomitant]
     Dosage: UNK
     Dates: start: 20090209
  8. DROSPIRENONE AND ETHINYL ESTRADIOL [Suspect]
     Indication: CONTRACEPTION
     Dosage: UNK
     Route: 048
     Dates: start: 20090201, end: 20090701

REACTIONS (10)
  - INJURY [None]
  - PANCREATITIS [None]
  - PULMONARY EMBOLISM [None]
  - DEEP VEIN THROMBOSIS [None]
  - CHOLECYSTITIS ACUTE [None]
  - PAIN [None]
  - MYOCARDIAL INFARCTION [None]
  - GALLBLADDER DISORDER [None]
  - CEREBROVASCULAR ACCIDENT [None]
  - BILE DUCT STONE [None]
